FAERS Safety Report 7754460-9 (Version None)
Quarter: 2011Q3

REPORT INFORMATION
  Report Type: 
  Country: None (occurrence: None)
  Receive Date: 20110915
  Receipt Date: 20110905
  Transmission Date: 20111222
  Serious: Yes (Hospitalization)
  Sender: FDA-Public Use
  Company Number: CN-GENENTECH-324074

PATIENT
  Sex: Female
  Weight: 100 kg

DRUGS (2)
  1. MABTHERA [Suspect]
     Indication: NON-HODGKIN'S LYMPHOMA
     Dosage: 700 MG, UNK
     Route: 041
     Dates: start: 20110605
  2. CHOP REGIMEN [Concomitant]
     Indication: NON-HODGKIN'S LYMPHOMA
     Dosage: UNK
     Dates: start: 20110605

REACTIONS (7)
  - PYREXIA [None]
  - ABDOMINAL PAIN UPPER [None]
  - RESPIRATORY FAILURE [None]
  - SEPSIS [None]
  - RENAL FAILURE [None]
  - HAEMATURIA [None]
  - PRODUCT COUNTERFEIT [None]
